FAERS Safety Report 9837315 (Version 3)
Quarter: 2014Q2

REPORT INFORMATION
  Report Type: Spontaneous
  Country: US (occurrence: US)
  Receive Date: 20140123
  Receipt Date: 20140423
  Transmission Date: 20141212
  Serious: No
  Sender: FDA-Public Use
  Company Number: US-PFIZER INC-2014020409

PATIENT
  Age: 60 Year
  Sex: Male

DRUGS (4)
  1. INLYTA [Suspect]
     Indication: RENAL CANCER
     Dosage: 5 MG, UNK
     Dates: start: 20140115, end: 201402
  2. INLYTA [Suspect]
     Dosage: 10 MG, 2X/DAY
     Dates: start: 20140206
  3. INLYTA [Suspect]
     Dosage: 5 MG, 2X/DAY
     Dates: start: 20140213
  4. INLYTA [Suspect]
     Dosage: UNK
     Dates: start: 20140211, end: 20140220

REACTIONS (4)
  - Diarrhoea [Unknown]
  - Confusional state [Not Recovered/Not Resolved]
  - Disturbance in attention [Not Recovered/Not Resolved]
  - Feeling abnormal [Not Recovered/Not Resolved]
